FAERS Safety Report 10257902 (Version 1)
Quarter: 2014Q2

REPORT INFORMATION
  Report Type: Spontaneous
  Country: US (occurrence: US)
  Receive Date: 20140625
  Receipt Date: 20140625
  Transmission Date: 20141212
  Serious: No
  Sender: FDA-Public Use
  Company Number: US-PFIZER INC-2014171193

PATIENT
  Age: 37 Year
  Sex: Female
  Weight: 78.46 kg

DRUGS (3)
  1. LEVOXYL [Suspect]
     Indication: HYPOTHYROIDISM
     Dosage: 100 UG, 1X/DAY
     Route: 048
     Dates: start: 2004, end: 201306
  2. SERTRALINE [Concomitant]
     Dosage: 25 MG, 1X/DAY
  3. OMEPRAZOLE [Concomitant]
     Indication: GASTROOESOPHAGEAL REFLUX DISEASE
     Dosage: 40 MG, 1X/DAY

REACTIONS (3)
  - Weight increased [Unknown]
  - Alopecia [Unknown]
  - Onychomadesis [Unknown]
